FAERS Safety Report 10914685 (Version 3)
Quarter: 2017Q2

REPORT INFORMATION
  Report Type: Report from Study
  Country: None (occurrence: KR)
  Receive Date: 20150313
  Receipt Date: 20170524
  Transmission Date: 20170829
  Serious: Yes (Hospitalization)
  Sender: FDA-Public Use
  Company Number: KR-ABBVIE-15P-090-1360761-00

PATIENT
  Age: 65 Year
  Sex: Male
  Weight: 64 kg

DRUGS (55)
  1. ANOREX [Concomitant]
     Active Substance: PHENMETRAZINE HYDROCHLORIDE
     Route: 048
     Dates: start: 20141230
  2. CELEBREX [Concomitant]
     Active Substance: CELECOXIB
     Indication: NECK PAIN
     Route: 048
     Dates: start: 20111121, end: 20141005
  3. TACENOL [Concomitant]
     Indication: PROPHYLAXIS
  4. TALION [Concomitant]
     Active Substance: BEPOTASTINE
     Indication: VASOMOTOR RHINITIS
     Route: 048
     Dates: start: 20120312, end: 20140906
  5. TRIDOL [Concomitant]
     Active Substance: TRAMADOL HYDROCHLORIDE
     Indication: NECK PAIN
     Route: 048
     Dates: start: 20140923, end: 20140929
  6. DEXAMETHASONE. [Concomitant]
     Active Substance: DEXAMETHASONE
     Route: 042
     Dates: start: 20141204, end: 20141204
  7. OPALMON [Concomitant]
     Active Substance: LIMAPROST
     Indication: NECK PAIN
     Route: 048
     Dates: start: 20150122, end: 20150204
  8. OPALMON [Concomitant]
     Active Substance: LIMAPROST
     Indication: NECK PAIN
     Route: 048
     Dates: start: 20150213, end: 20150227
  9. ADISEN [Concomitant]
     Route: 048
     Dates: start: 20140919, end: 20141112
  10. GABAPENTIN. [Concomitant]
     Active Substance: GABAPENTIN
     Indication: NECK PAIN
     Route: 048
     Dates: start: 20130312, end: 20141127
  11. PARAMACET [Concomitant]
     Active Substance: ACETAMINOPHEN\TRAMADOL
     Indication: ARTHRALGIA
     Route: 048
     Dates: start: 20090720, end: 20140902
  12. MOTESON [Concomitant]
     Indication: VASOMOTOR RHINITIS
     Route: 045
     Dates: start: 20141017
  13. ALLED [Concomitant]
     Indication: PROPHYLAXIS
  14. ADISEN [Concomitant]
     Route: 048
     Dates: start: 20150122, end: 20150204
  15. CYMBALTA [Concomitant]
     Active Substance: DULOXETINE HYDROCHLORIDE
     Route: 048
     Dates: start: 20150213, end: 20150227
  16. NEUSILIN [Concomitant]
     Indication: PROPHYLAXIS
  17. STILLEN [Concomitant]
     Indication: PROPHYLAXIS
     Route: 048
     Dates: start: 20141230
  18. FOLIC ACID. [Concomitant]
     Active Substance: FOLIC ACID
     Indication: ARTHRALGIA
     Route: 048
     Dates: start: 20120314
  19. ASPIRIN. [Concomitant]
     Active Substance: ASPIRIN
     Indication: CARDIOVASCULAR EVENT PROPHYLAXIS
     Route: 048
     Dates: start: 20080613
  20. TALION [Concomitant]
     Active Substance: BEPOTASTINE
     Route: 048
     Dates: start: 20140912
  21. RHINOVENT [Concomitant]
     Indication: VASOMOTOR RHINITIS
     Route: 045
     Dates: start: 20140912
  22. LIMADIN [Concomitant]
     Indication: NECK PAIN
     Route: 048
     Dates: start: 20140919, end: 20141112
  23. OPALMON [Concomitant]
     Active Substance: LIMAPROST
     Indication: NECK PAIN
     Route: 048
     Dates: start: 20141204, end: 20141221
  24. RENOX [Concomitant]
     Indication: STOMATITIS
     Route: 048
     Dates: start: 20141230, end: 20150109
  25. RENOX [Concomitant]
     Indication: PROPHYLAXIS
  26. MAXICLAN [Concomitant]
     Indication: STOMATITIS
     Route: 048
     Dates: start: 20141230, end: 20150109
  27. ANOREX [Concomitant]
     Active Substance: PHENMETRAZINE HYDROCHLORIDE
     Indication: NECK PAIN
     Route: 048
     Dates: start: 20090121, end: 20141127
  28. TACENOL [Concomitant]
     Indication: ARTHRALGIA
     Route: 048
     Dates: start: 20140903
  29. ALLED [Concomitant]
     Indication: PRURITUS
     Route: 048
     Dates: start: 20140930, end: 20141112
  30. NEURONTIN [Concomitant]
     Active Substance: GABAPENTIN
     Indication: NECK PAIN
     Route: 048
     Dates: start: 20141230
  31. ADISEN [Concomitant]
     Route: 048
     Dates: start: 20150213, end: 20150227
  32. HEXAMEDINE [Concomitant]
     Indication: PROPHYLAXIS
  33. STILLEN [Concomitant]
     Indication: NECK PAIN
  34. VESICARE [Concomitant]
     Active Substance: SOLIFENACIN SUCCINATE
     Indication: BENIGN PROSTATIC HYPERPLASIA
     Route: 048
     Dates: start: 20130116
  35. ALLED [Concomitant]
     Indication: NECK PAIN
     Route: 048
     Dates: start: 20150122, end: 20150204
  36. ALLED [Concomitant]
     Indication: GASTRIC DISORDER
     Route: 048
     Dates: start: 20141204, end: 20141210
  37. DEXAMETHASONE. [Concomitant]
     Active Substance: DEXAMETHASONE
     Indication: NECK PAIN
     Route: 042
     Dates: start: 20140930, end: 20140930
  38. CYMBALTA [Concomitant]
     Active Substance: DULOXETINE HYDROCHLORIDE
     Indication: NECK PAIN
     Route: 048
     Dates: start: 20150127, end: 20150209
  39. MAXICLAN [Concomitant]
     Indication: PROPHYLAXIS
  40. HYTRIN [Concomitant]
     Active Substance: TERAZOSIN HYDROCHLORIDE
     Indication: BENIGN PROSTATIC HYPERPLASIA
     Route: 048
     Dates: start: 20100226
  41. TARGIN [Concomitant]
     Active Substance: NALOXONE HYDROCHLORIDE\OXYCODONE HYDROCHLORIDE
     Indication: NECK PAIN
     Route: 048
     Dates: start: 20140919, end: 20140922
  42. TARGIN [Concomitant]
     Active Substance: NALOXONE HYDROCHLORIDE\OXYCODONE HYDROCHLORIDE
     Indication: NECK PAIN
     Route: 048
     Dates: start: 20141211, end: 20150204
  43. TEVETEN [Suspect]
     Active Substance: EPROSARTAN MESYLATE
     Indication: PRODUCT USED FOR UNKNOWN INDICATION
     Route: 048
     Dates: start: 20140901
  44. ARAVA [Concomitant]
     Active Substance: LEFLUNOMIDE
     Indication: ARTHRALGIA
     Route: 048
     Dates: start: 20110316
  45. AVAMYS [Concomitant]
     Active Substance: FLUTICASONE FUROATE
     Indication: VASOMOTOR RHINITIS
     Route: 045
     Dates: start: 20110318, end: 20141016
  46. PREVENTAN [Concomitant]
     Indication: DERMATITIS
     Dosage: 3 TIMES
     Dates: start: 20141017, end: 20141117
  47. BEECOM HEXA [Concomitant]
     Indication: VITAMIN SUPPLEMENTATION
     Route: 042
     Dates: start: 20150227, end: 20150227
  48. RIVOTRIL [Concomitant]
     Active Substance: CLONAZEPAM
     Indication: SEDATION
     Route: 048
     Dates: start: 20150127, end: 20150210
  49. NEUSILIN [Concomitant]
     Indication: GASTRIC DISORDER
     Route: 048
     Dates: start: 20141230, end: 20150109
  50. STILLEN [Concomitant]
     Indication: GASTRIC DISORDER
     Route: 048
     Dates: start: 20090127, end: 20141127
  51. LODINE [Concomitant]
     Active Substance: ETODOLAC
     Indication: ARTHRALGIA
     Route: 048
     Dates: start: 20141128, end: 20150122
  52. POTEMIN [Concomitant]
     Indication: NUTRITIONAL SUPPLEMENTATION
     Dosage: UNIT DOSE:1 BAG; DAILY DOSE:1 BAG
     Route: 042
     Dates: start: 20150227, end: 20150227
  53. ADISEN [Concomitant]
     Indication: NECK PAIN
     Route: 048
     Dates: start: 20141204, end: 20141210
  54. LEXAPRO [Concomitant]
     Active Substance: ESCITALOPRAM OXALATE
     Indication: SEDATION
     Route: 048
     Dates: start: 20150122, end: 20150126
  55. HEXAMEDINE [Concomitant]
     Indication: STOMATITIS
     Dates: start: 20141230

REACTIONS (1)
  - Intervertebral disc protrusion [Recovering/Resolving]

NARRATIVE: CASE EVENT DATE: 20141221
